FAERS Safety Report 5592592-4 (Version None)
Quarter: 2008Q1

REPORT INFORMATION
  Report Type: 
  Country: None (occurrence: None)
  Receive Date: 20080114
  Receipt Date: 20080103
  Transmission Date: 20080703
  Serious: Yes (Hospitalization)
  Sender: FDA-Public Use
  Company Number: 231256J07USA

PATIENT
  Age: 42 Year
  Sex: Female
  Weight: 76.2043 kg

DRUGS (8)
  1. REBIF [Suspect]
     Indication: MULTIPLE SCLEROSIS
     Dosage: SEE IMAGE
     Route: 058
     Dates: start: 20070110, end: 20070901
  2. REBIF [Suspect]
     Indication: MULTIPLE SCLEROSIS
     Dosage: SEE IMAGE
     Route: 058
     Dates: start: 20070901, end: 20071001
  3. REBIF [Suspect]
     Indication: MULTIPLE SCLEROSIS
     Dosage: SEE IMAGE
     Route: 058
     Dates: start: 20071001, end: 20071001
  4. REBIF [Suspect]
     Indication: MULTIPLE SCLEROSIS
     Dosage: SEE IMAGE
     Route: 058
     Dates: start: 20071001
  5. NEXIUM [Concomitant]
  6. AMBIEN [Concomitant]
  7. PROZAC [Concomitant]
  8. XANAX [Concomitant]

REACTIONS (5)
  - BLOOD POTASSIUM DECREASED [None]
  - DEATH OF RELATIVE [None]
  - IRRITABLE BOWEL SYNDROME [None]
  - STRESS [None]
  - WEIGHT DECREASED [None]
